FAERS Safety Report 6166708-5 (Version None)
Quarter: 2009Q2

REPORT INFORMATION
  Report Type: 
  Country: None (occurrence: None)
  Receive Date: 20090424
  Receipt Date: 20081127
  Transmission Date: 20091009
  Serious: Yes (Hospitalization)
  Sender: FDA-Public Use
  Company Number: GB-PFIZER INC-2008101191

PATIENT

DRUGS (2)
  1. DOCETAXEL [Suspect]
     Indication: PROSTATE CANCER METASTATIC
  2. PREDNISOLONE AND PREDNISOLONE STEAGLATE [Suspect]
     Indication: PROSTATE CANCER METASTATIC

REACTIONS (2)
  - ENDOCARDITIS BACTERIAL [None]
  - VASCULITIS [None]
